FAERS Safety Report 19116953 (Version 2)
Quarter: 2021Q2

REPORT INFORMATION
  Report Type: Spontaneous
  Country: US (occurrence: US)
  Receive Date: 20210409
  Receipt Date: 20210630
  Transmission Date: 20210717
  Serious: Yes (Hospitalization)
  Sender: FDA-Public Use
  Company Number: US-ASTRAZENECA-2021A279743

PATIENT
  Age: 65 Year
  Sex: Male
  Weight: 79.4 kg

DRUGS (4)
  1. PLAVIX [Concomitant]
     Active Substance: CLOPIDOGREL BISULFATE
     Route: 065
  2. BRILINTA [Suspect]
     Active Substance: TICAGRELOR
     Indication: MYOCARDIAL INFARCTION
     Dosage: 2 A DAY FOR THE FIRST DAY AND THEN 1 A DAY AFTER
     Route: 048
     Dates: start: 20180309, end: 20180420
  3. BRILINTA [Suspect]
     Active Substance: TICAGRELOR
     Indication: CORONARY ARTERIAL STENT INSERTION
     Dosage: 2 A DAY FOR THE FIRST DAY AND THEN 1 A DAY AFTER
     Route: 048
     Dates: start: 20180309, end: 20180420
  4. EVOLOCUMAB [Suspect]
     Active Substance: EVOLOCUMAB
     Route: 065

REACTIONS (12)
  - Pain in extremity [Unknown]
  - Rash [Unknown]
  - Chest pain [Unknown]
  - Nausea [Unknown]
  - Dizziness [Unknown]
  - Fatigue [Unknown]
  - Myocardial infarction [Unknown]
  - Muscle spasms [Unknown]
  - Memory impairment [Unknown]
  - Hyperhidrosis [Unknown]
  - Anxiety [Unknown]
  - Anger [Recovered/Resolved]

NARRATIVE: CASE EVENT DATE: 20200701
